FAERS Safety Report 18251076 (Version 1)
Quarter: 2020Q3

REPORT INFORMATION
  Report Type: Spontaneous
  Country: US (occurrence: US)
  Receive Date: 20200910
  Receipt Date: 20200910
  Transmission Date: 20201103
  Serious: No
  Sender: FDA-Public Use
  Company Number: US-GLAXOSMITHKLINE-US2020AMR178553

PATIENT
  Sex: Female

DRUGS (1)
  1. ZEJULA [Suspect]
     Active Substance: NIRAPARIB
     Indication: OVARIAN CANCER
     Dosage: O100 MG, QD
     Route: 048
     Dates: start: 20200829

REACTIONS (8)
  - Pain [Unknown]
  - Dysuria [Unknown]
  - Urine output decreased [Unknown]
  - Constipation [Unknown]
  - Feeling hot [Unknown]
  - Asthenia [Unknown]
  - Off label use [Unknown]
  - Dizziness [Unknown]
